FAERS Safety Report 7292301-7 (Version None)
Quarter: 2011Q1

REPORT INFORMATION
  Report Type: 
  Country: None (occurrence: None)
  Receive Date: 20110215
  Receipt Date: 20110204
  Transmission Date: 20110831
  Serious: No
  Sender: FDA-Public Use
  Company Number: PHHO2011DK01405

PATIENT
  Sex: Male
  Weight: 103 kg

DRUGS (5)
  1. ENALAPRIL MALEATE [Suspect]
     Dosage: CODE NOT BROKEN
     Route: 048
     Dates: start: 20101221
  2. ENALAPRIL MALEATE [Suspect]
     Indication: CARDIAC FAILURE
  3. ALISKIREN [Suspect]
     Indication: CARDIAC FAILURE
  4. BLINDED ALISKIREN [Suspect]
     Dosage: CODE NOT BROKEN
     Route: 048
     Dates: start: 20101221
  5. BLINDED NO TREATMENT RECEIVED [Suspect]
     Dosage: CODE NOT BROKEN
     Route: 048
     Dates: start: 20101221

REACTIONS (2)
  - OVERDOSE [None]
  - MEDICATION ERROR [None]
